FAERS Safety Report 12406330 (Version 1)
Quarter: 2016Q2

REPORT INFORMATION
  Report Type: Spontaneous
  Country: SE (occurrence: SE)
  Receive Date: 20160526
  Receipt Date: 20160526
  Transmission Date: 20160815
  Serious: Yes (Life-Threatening, Other)
  Sender: FDA-Public Use
  Company Number: SE-WATSON-2016-10807

PATIENT
  Age: 37 Year
  Sex: Female
  Weight: 80 kg

DRUGS (7)
  1. OXYTOCIN. [Concomitant]
     Active Substance: OXYTOCIN
     Indication: DELAYED DELIVERY
     Dosage: UNKNOWN
     Route: 065
  2. RINGER LACTATE                     /01126301/ [Concomitant]
     Indication: PRODUCT USED FOR UNKNOWN INDICATION
     Dosage: 1000 ML, TOTAL
     Route: 042
  3. DINOPROSTONE. [Concomitant]
     Active Substance: DINOPROSTONE
     Indication: DELAYED DELIVERY
     Dosage: UNKNOWN
     Route: 065
  4. PHENYLEPHRINE [Concomitant]
     Active Substance: PHENYLEPHRINE\PHENYLEPHRINE HYDROCHLORIDE
     Indication: BLOOD PRESSURE ABNORMAL
     Dosage: 0.05 MG, REPEATED DOSES
     Route: 065
  5. ROPIVACAINE (UNKNOWN) [Suspect]
     Active Substance: ROPIVACAINE
     Indication: ANAESTHESIA
     Dosage: TOP UP BOLUS OF 3 + 12 ML ROPIVACAINE
     Route: 008
  6. MISOPROSTOL. [Concomitant]
     Active Substance: MISOPROSTOL
     Indication: DELAYED DELIVERY
     Dosage: UNKNOWN
     Route: 065
  7. FENTANYL (UNKNOWN) [Suspect]
     Active Substance: FENTANYL
     Indication: ANAESTHESIA
     Dosage: 50 MCG, TOTAL
     Route: 008

REACTIONS (4)
  - Wrong technique in product usage process [Unknown]
  - Bezold-Jarisch reflex [Recovered/Resolved]
  - Maternal exposure during delivery [Recovered/Resolved]
  - Circulatory collapse [Recovered/Resolved]
